FAERS Safety Report 17724915 (Version 3)
Quarter: 2020Q2

REPORT INFORMATION
  Report Type: Spontaneous
  Country: US (occurrence: US)
  Receive Date: 20200429
  Receipt Date: 20200519
  Transmission Date: 20200714
  Serious: Yes (Other)
  Sender: FDA-Public Use
  Company Number: US-PHARMING-PHAUS2020000176

PATIENT

DRUGS (3)
  1. PRENATAL VITAMINS                  /02014401/ [Concomitant]
     Active Substance: VITAMINS
     Indication: PREGNANCY
  2. RUCONEST [Suspect]
     Active Substance: HUMAN C1-ESTERASE INHIBITOR
     Indication: HEREDITARY ANGIOEDEMA WITH C1 ESTERASE INHIBITOR DEFICIENCY
     Dosage: 2700 IU INTERNATIONAL UNIT(S)
     Route: 042
     Dates: start: 20200320
  3. LEVOTHYROXINE. [Concomitant]
     Active Substance: LEVOTHYROXINE
     Indication: HYPOTHYROIDISM

REACTIONS (16)
  - Bedridden [Recovered/Resolved]
  - Headache [Unknown]
  - Migraine [Unknown]
  - Abdominal pain [Unknown]
  - Maternal exposure during pregnancy [Unknown]
  - Photophobia [Recovered/Resolved]
  - Fatigue [Recovered/Resolved]
  - Sinus headache [Recovered/Resolved]
  - Ovarian cyst [Unknown]
  - Hereditary angioedema [Unknown]
  - Haemorrhage intracranial [Unknown]
  - Malaise [Recovered/Resolved]
  - Eye pain [Recovered/Resolved]
  - Condition aggravated [Unknown]
  - Pyrexia [Recovered/Resolved]
  - Vaginal haemorrhage [Unknown]

NARRATIVE: CASE EVENT DATE: 20200411
